FAERS Safety Report 7203861-6 (Version None)
Quarter: 2010Q4

REPORT INFORMATION
  Report Type: 
  Country: None (occurrence: None)
  Receive Date: 20101230
  Receipt Date: 20101220
  Transmission Date: 20110411
  Serious: Yes (Hospitalization)
  Sender: FDA-Public Use
  Company Number: FR-GILEAD-2010-0034636

PATIENT
  Sex: Female

DRUGS (7)
  1. TRUVADA [Suspect]
     Indication: HIV INFECTION
     Dates: start: 20100304, end: 20101202
  2. PREZISTA [Concomitant]
     Dates: start: 20100304
  3. NORVIR [Concomitant]
     Dates: start: 20100304
  4. FLUDEX [Concomitant]
  5. DOLIPRANE [Concomitant]
  6. PRIMPERAN TAB [Concomitant]
  7. BACTRIM [Concomitant]

REACTIONS (2)
  - BACK PAIN [None]
  - OSTEONECROSIS [None]
